FAERS Safety Report 7356888 (Version 26)
Quarter: 2013Q4

REPORT INFORMATION
  Report Type: Spontaneous
  Country: US (occurrence: US)
  Receive Date: 20100416
  Receipt Date: 20131206
  Transmission Date: 20140711
  Serious: Yes (Other)
  Sender: FDA-Public Use
  Company Number: PHEH2010US03402

PATIENT
  Sex: Female

DRUGS (26)
  1. ZOMETA [Suspect]
     Indication: PLASMA CELL MYELOMA
     Dosage: 4 MG, QMO
     Route: 042
     Dates: start: 20061129
  2. FOSAMAX [Suspect]
  3. METHOTREXATE [Concomitant]
  4. PERIDEX [Concomitant]
  5. CELEBREX [Concomitant]
  6. LISINOPRIL [Concomitant]
  7. HYDROCHLOROTHIAZIDE [Concomitant]
  8. PRIMIDONE [Concomitant]
  9. SEROQUEL [Concomitant]
  10. COUMADIN ^BOOTS^ [Concomitant]
  11. PREDNISONE [Concomitant]
  12. THALIDOMIDE [Concomitant]
  13. HYDROXYCHLOROQUINE [Concomitant]
  14. PERCOCET [Concomitant]
  15. SULFASALAZINE [Concomitant]
     Dosage: 1 G, BID
  16. GLUCOSAMINE [Concomitant]
  17. CHONDROITIN SULFATE [Concomitant]
  18. FUROSEMIDE [Concomitant]
     Dosage: 40 MG, UNK
  19. SYNTHROID [Concomitant]
     Dosage: 88 MG, BID
  20. COUMADIN [Concomitant]
  21. CALCIUM [Concomitant]
  22. VITAMIN K [Concomitant]
     Dosage: 100 MG, UNK
  23. VITAMIN D [Concomitant]
  24. VANCOMYCIN [Concomitant]
  25. AMIODARONE [Concomitant]
  26. ENABLEX [Concomitant]

REACTIONS (122)
  - Cardiac failure congestive [Unknown]
  - Osteoporosis [Unknown]
  - Osteonecrosis of jaw [Unknown]
  - Injury [Unknown]
  - Pain [Unknown]
  - Anxiety [Unknown]
  - Exposed bone in jaw [Unknown]
  - Anhedonia [Unknown]
  - Tooth loss [Unknown]
  - Monoclonal gammopathy [Unknown]
  - Neuropathy peripheral [Unknown]
  - Thrombosis [Unknown]
  - H1N1 influenza [Unknown]
  - Macrocytosis [Unknown]
  - Scoliosis [Unknown]
  - Dyspnoea [Unknown]
  - Kyphosis [Unknown]
  - Aortic arteriosclerosis [Unknown]
  - Pulmonary fibrosis [Unknown]
  - Intervertebral disc degeneration [Unknown]
  - Effusion [Unknown]
  - Mitral valve incompetence [Unknown]
  - Left atrial dilatation [Unknown]
  - Ischaemic cardiomyopathy [Unknown]
  - Dyslipidaemia [Unknown]
  - Atelectasis [Unknown]
  - Renal failure [Unknown]
  - Stress urinary incontinence [Unknown]
  - Urinary retention [Unknown]
  - Micturition urgency [Unknown]
  - Dysuria [Unknown]
  - Urine analysis abnormal [Unknown]
  - Pulmonary embolism [Unknown]
  - Atrial flutter [Unknown]
  - Raynaud^s phenomenon [Unknown]
  - Anaemia [Unknown]
  - Leukopenia [Unknown]
  - Thyroid disorder [Unknown]
  - Hypothyroidism [Unknown]
  - Diverticulum intestinal [Unknown]
  - Large intestine polyp [Unknown]
  - Haemorrhoids [Unknown]
  - Sinus arrest [Unknown]
  - Sinus bradycardia [Unknown]
  - Osteopenia [Unknown]
  - Gastrooesophageal reflux disease [Unknown]
  - Supraventricular tachycardia [Unknown]
  - Hip fracture [Unknown]
  - Sinus arrhythmia [Unknown]
  - Back pain [Unknown]
  - Constipation [Unknown]
  - Arthralgia [Unknown]
  - Diarrhoea [Unknown]
  - Plantar fasciitis [Unknown]
  - Haematuria [Unknown]
  - Cardiomegaly [Unknown]
  - Fractured sacrum [Unknown]
  - Pelvic deformity [Unknown]
  - Bone marrow oedema [Unknown]
  - Intervertebral disc protrusion [Unknown]
  - Spinal osteoarthritis [Unknown]
  - Essential tremor [Unknown]
  - Arthritis [Unknown]
  - Cardiac disorder [Unknown]
  - Sacralisation [Unknown]
  - Spondylolisthesis [Unknown]
  - Osteosclerosis [Unknown]
  - Bone deformity [Unknown]
  - Exostosis [Unknown]
  - Vertebral foraminal stenosis [Unknown]
  - Ligament disorder [Unknown]
  - Facet joint syndrome [Unknown]
  - Urinary tract infection [Unknown]
  - Vascular calcification [Unknown]
  - Arteriosclerosis [Unknown]
  - Renal disorder [Unknown]
  - Pubis fracture [Unknown]
  - Dilatation ventricular [Unknown]
  - Left ventricular dysfunction [Unknown]
  - Akinesia [Unknown]
  - Ventricular hypokinesia [Unknown]
  - Right atrial dilatation [Unknown]
  - Pulmonary hypertension [Unknown]
  - Tricuspid valve incompetence [Unknown]
  - Bundle branch block bilateral [Unknown]
  - Renal cyst [Unknown]
  - Hyponatraemia [Unknown]
  - Lung infiltration [Unknown]
  - Fall [Unknown]
  - Dizziness [Unknown]
  - Fracture displacement [Unknown]
  - Femoral neck fracture [Unknown]
  - Sick sinus syndrome [Unknown]
  - Rib fracture [Unknown]
  - Head injury [Unknown]
  - Cerebellar atrophy [Unknown]
  - Respiratory distress [Unknown]
  - Acute respiratory failure [Unknown]
  - Chronic obstructive pulmonary disease [Unknown]
  - Polyuria [Unknown]
  - Gastrointestinal haemorrhage [Unknown]
  - Gastric ulcer [Unknown]
  - Intestinal ulcer [Unknown]
  - Bacteriuria [Unknown]
  - Myocardial ischaemia [Unknown]
  - Wound infection [Unknown]
  - Diabetes mellitus [Unknown]
  - Asthma [Unknown]
  - Postoperative wound infection [Unknown]
  - Colon adenoma [Unknown]
  - Inguinal hernia [Unknown]
  - Joint swelling [Unknown]
  - Osteoarthritis [Unknown]
  - Chondrocalcinosis [Unknown]
  - Neutropenia [Unknown]
  - Pancytopenia [Unknown]
  - Mononeuritis [Unknown]
  - Cardiac murmur [Unknown]
  - Vitamin B12 deficiency [Unknown]
  - Neck pain [Unknown]
  - Cough [Unknown]
  - Oedema peripheral [Unknown]
